FAERS Safety Report 9047322 (Version 1)
Quarter: 2013Q1

REPORT INFORMATION
  Report Type: Report from Study
  Country: US (occurrence: US)
  Receive Date: 20130131
  Receipt Date: 20130131
  Transmission Date: 20140127
  Serious: No
  Sender: FDA-Public Use
  Company Number: US-ABBOTT-12P-163-0978547-00

PATIENT
  Age: 63 Year
  Sex: Female

DRUGS (15)
  1. HUMIRA [Suspect]
     Indication: RHEUMATOID ARTHRITIS
     Dates: start: 20110731
  2. FOLIC ACID [Concomitant]
     Indication: RHEUMATOID ARTHRITIS
     Dosage: DUE TO METHOTREXATE
  3. METHOTREXATE [Concomitant]
     Indication: PRODUCT USED FOR UNKNOWN INDICATION
     Dosage: 6 TABLETS WEEKLY
  4. MELOXICAM [Concomitant]
     Indication: RHEUMATOID ARTHRITIS
     Dosage: 15MG DAILY
  5. METOPROLOL [Concomitant]
     Indication: HYPERTENSION
     Dosage: 100MG DAILY
  6. HYZAAR [Concomitant]
     Indication: HYPERTENSION
     Dosage: 100/25MG DAILY
  7. CRESTOR [Concomitant]
     Indication: BLOOD CHOLESTEROL INCREASED
     Dosage: 20MG DAILY
  8. RESTASIS [Concomitant]
     Indication: DRY EYE
     Dosage: 1 DROP EACH EYE DAILY
  9. FOSAMAX [Concomitant]
     Indication: OSTEOPOROSIS
  10. CALCIUM WITH VITAMIN D [Concomitant]
     Indication: MINERAL SUPPLEMENTATION
     Dosage: 600MG WITH VITAMIN D
  11. FISH OIFISH OIL WITH OMEGA 3 [Concomitant]
     Indication: PRODUCT USED FOR UNKNOWN INDICATION
  12. CITRACEL [Concomitant]
     Indication: PRODUCT USED FOR UNKNOWN INDICATION
     Dosage: DAILY
  13. MULTI-VITAMIN [Concomitant]
     Indication: PRODUCT USED FOR UNKNOWN INDICATION
     Dosage: DAILY
  14. PREMARIN VAGINAL [Concomitant]
     Indication: PRODUCT USED FOR UNKNOWN INDICATION
     Dosage: TWICE DAILY WEEKLY
  15. SYSTANE [Concomitant]
     Indication: DRY EYE
     Dosage: 1-2 TIMES PER DAY

REACTIONS (3)
  - Arthropod bite [Recovering/Resolving]
  - Infected bites [Recovering/Resolving]
  - Erythema [Recovering/Resolving]
